FAERS Safety Report 20626254 (Version 1)
Quarter: 2022Q1

REPORT INFORMATION
  Report Type: Spontaneous
  Country: US (occurrence: None)
  Receive Date: 20220323
  Receipt Date: 20220323
  Transmission Date: 20220423
  Serious: No
  Sender: FDA-Public Use
  Company Number: US-ROCHE-2820112

PATIENT
  Sex: Male
  Weight: 115.77 kg

DRUGS (5)
  1. ERIVEDGE [Suspect]
     Active Substance: VISMODEGIB
     Indication: Basal cell carcinoma
     Route: 048
  2. BACLOFEN [Concomitant]
     Active Substance: BACLOFEN
  3. CYCLOBENZAPRINE [Concomitant]
     Active Substance: CYCLOBENZAPRINE
  4. GABAPENTIN [Concomitant]
     Active Substance: GABAPENTIN
  5. CHANTIX [Concomitant]
     Active Substance: VARENICLINE TARTRATE

REACTIONS (2)
  - Drug ineffective [Unknown]
  - No adverse event [Unknown]
